FAERS Safety Report 5691745-4 (Version None)
Quarter: 2008Q2

REPORT INFORMATION
  Report Type: 
  Country: None (occurrence: None)
  Receive Date: 20080328
  Receipt Date: 20070508
  Transmission Date: 20081010
  Serious: Yes (Hospitalization, Other)
  Sender: FDA-Public Use
  Company Number: 36859

PATIENT
  Age: 59 Year
  Sex: Female

DRUGS (1)
  1. ADRIAMYCIN PFS [Suspect]
     Indication: BREAST CANCER
     Dosage: INITIAL DOSE 104 MG IV
     Route: 042
     Dates: start: 20070122

REACTIONS (2)
  - CARDIAC FAILURE [None]
  - PERICARDIAL EFFUSION [None]
